FAERS Safety Report 9174345 (Version 1)
Quarter: 2013Q1

REPORT INFORMATION
  Report Type: Report from Study
  Country: CA (occurrence: CA)
  Receive Date: 20130320
  Receipt Date: 20130320
  Transmission Date: 20140127
  Serious: Yes (Other)
  Sender: FDA-Public Use
  Company Number: CA-JNJFOC-20130304110

PATIENT
  Sex: Female
  Weight: 112 kg

DRUGS (6)
  1. REMICADE [Suspect]
     Indication: RHEUMATOID ARTHRITIS
     Route: 042
     Dates: start: 2009
  2. THYROXINE [Concomitant]
     Route: 065
  3. ARAVA [Concomitant]
     Route: 065
  4. CELEBREX [Concomitant]
     Route: 065
  5. PREDNISONE [Concomitant]
     Dosage: AS NEEDED
     Route: 065
  6. TYLENOL EXTRA STRENGTH [Concomitant]
     Route: 065

REACTIONS (1)
  - Giant cell tumour of tendon sheath [Recovering/Resolving]
